FAERS Safety Report 4412821-X (Version None)
Quarter: 2004Q3

REPORT INFORMATION
  Report Type: 
  Country: None (occurrence: None)
  Receive Date: 20040727
  Receipt Date: 20040716
  Transmission Date: 20050211
  Serious: Yes (Other)
  Sender: FDA-Public Use
  Company Number: 207931

PATIENT
  Age: 49 Year
  Sex: Female

DRUGS (1)
  1. NUTROPIN [Suspect]
     Indication: HYPOPITUITARISM
     Dosage: 20 UNIT, QD
     Dates: start: 20010801

REACTIONS (1)
  - CARCINOID TUMOUR [None]
